FAERS Safety Report 14482706 (Version 1)
Quarter: 2018Q1

REPORT INFORMATION
  Report Type: Spontaneous
  Country: HR (occurrence: HR)
  Receive Date: 20180203
  Receipt Date: 20180203
  Transmission Date: 20180509
  Serious: Yes (Other)
  Sender: FDA-Public Use
  Company Number: HR-TEVA-2018-HR-851194

PATIENT
  Sex: Male

DRUGS (1)
  1. RISSET [Suspect]
     Active Substance: RISPERIDONE
     Route: 048
     Dates: start: 20171017, end: 20171017

REACTIONS (2)
  - Tachycardia [Unknown]
  - Drug abuse [Unknown]

NARRATIVE: CASE EVENT DATE: 20171017
